FAERS Safety Report 14970824 (Version 1)
Quarter: 2018Q2

REPORT INFORMATION
  Report Type: Spontaneous
  Country: US (occurrence: US)
  Receive Date: 20180604
  Receipt Date: 20180604
  Transmission Date: 20180711
  Serious: Yes (Other)
  Sender: FDA-Public Use
  Company Number: US-JNJFOC-20180535763

PATIENT
  Sex: Female

DRUGS (1)
  1. LEVAQUIN [Suspect]
     Active Substance: LEVOFLOXACIN
     Indication: FUNGAL INFECTION
     Route: 065

REACTIONS (2)
  - Paralysis [Unknown]
  - Tendon disorder [Unknown]
